FAERS Safety Report 23747089 (Version 1)
Quarter: 2024Q2

REPORT INFORMATION
  Report Type: Spontaneous
  Country: ME (occurrence: None)
  Receive Date: 20240416
  Receipt Date: 20240416
  Transmission Date: 20240716
  Serious: Yes (Other)
  Sender: FDA-Public Use
  Company Number: ME-ROCHE-3540593

PATIENT
  Age: 69 Year
  Sex: Male

DRUGS (2)
  1. ESBRIET [Suspect]
     Active Substance: PIRFENIDONE
     Indication: Pulmonary fibrosis
     Dosage: DOSAGE: 3X1, THEN 3X2
     Route: 048
     Dates: start: 202312, end: 2024
  2. PULMICORT TURBUHALER [Concomitant]
     Active Substance: BUDESONIDE

REACTIONS (4)
  - Choking [Recovering/Resolving]
  - Wheezing [Recovering/Resolving]
  - Hypertension [Recovering/Resolving]
  - Peripheral swelling [Recovering/Resolving]
